FAERS Safety Report 7708839-1 (Version None)
Quarter: 2011Q3

REPORT INFORMATION
  Report Type: 
  Country: None (occurrence: None)
  Receive Date: 20110825
  Receipt Date: 20110822
  Transmission Date: 20111222
  Serious: Yes (Death, Other)
  Sender: FDA-Public Use
  Company Number: JP-BAYER-200911454BYL

PATIENT
  Age: 61 Year
  Sex: Male
  Weight: 52 kg

DRUGS (6)
  1. PENCLUSIN [Concomitant]
     Dosage: 24 MG, QD
     Route: 048
     Dates: start: 20090416, end: 20090419
  2. NEXAVAR [Suspect]
     Indication: RENAL CELL CARCINOMA STAGE IV
     Dosage: 400 MG, BID
     Route: 048
     Dates: start: 20090414, end: 20090427
  3. NEXAVAR [Suspect]
     Dosage: 400 MG, QD
     Route: 048
     Dates: start: 20090508, end: 20090509
  4. ZOLPIDEM [Concomitant]
     Dosage: 5 MG, QD
     Route: 048
     Dates: start: 20090415, end: 20090418
  5. MILTAX [Concomitant]
     Dosage: 1 DF (DAILY DOSE), , TRANSDERMAL
     Route: 062
     Dates: start: 20090419
  6. NEXAVAR [Suspect]
     Dosage: 400 MG, QD
     Route: 048
     Dates: start: 20090428, end: 20090501

REACTIONS (7)
  - RASH [None]
  - PALMAR-PLANTAR ERYTHRODYSAESTHESIA SYNDROME [None]
  - CARDIAC FAILURE CONGESTIVE [None]
  - HYPERTENSION [None]
  - BONE MARROW FAILURE [None]
  - GINGIVAL BLEEDING [None]
  - NAUSEA [None]
